FAERS Safety Report 10143955 (Version 1)
Quarter: 2014Q2

REPORT INFORMATION
  Report Type: Spontaneous
  Country: US (occurrence: US)
  Receive Date: 20140430
  Receipt Date: 20140430
  Transmission Date: 20141212
  Serious: No
  Sender: FDA-Public Use
  Company Number: US-ASTRAZENECA-2014SE23359

PATIENT
  Age: 65 Year
  Sex: 0
  Weight: 49.9 kg

DRUGS (9)
  1. ATENOLOL [Suspect]
     Indication: BLOOD PRESSURE ABNORMAL
     Route: 048
  2. PULMICORT RESPULES [Suspect]
     Indication: EMPHYSEMA
     Route: 055
     Dates: start: 20130408
  3. LISINOPRIL [Suspect]
     Indication: BLOOD PRESSURE ABNORMAL
     Route: 048
  4. ATROVENT [Concomitant]
     Indication: EMPHYSEMA
     Route: 055
  5. QVAR [Concomitant]
     Indication: EMPHYSEMA
     Dosage: BID
     Route: 055
  6. COMBIVENT [Concomitant]
     Indication: EMPHYSEMA
     Dosage: QID
     Route: 055
  7. ALENDRONATE [Concomitant]
     Indication: OSTEOPOROSIS
     Route: 048
  8. AMLODIPINE [Concomitant]
     Indication: BLOOD PRESSURE ABNORMAL
     Route: 048
  9. LORAZEPAM [Concomitant]
     Indication: ANXIETY
     Route: 048

REACTIONS (4)
  - Weight decreased [Not Recovered/Not Resolved]
  - Intentional product misuse [Not Recovered/Not Resolved]
  - Expired product administered [Recovered/Resolved]
  - Drug ineffective [Unknown]
